FAERS Safety Report 4319756-1 (Version None)
Quarter: 2004Q1

REPORT INFORMATION
  Report Type: 
  Country: None (occurrence: None)
  Receive Date: 20040319
  Receipt Date: 20031229
  Transmission Date: 20041129
  Serious: Yes (Other)
  Sender: FDA-Public Use
  Company Number: FR-GLAXOSMITHKLINE-B0318810A

PATIENT
  Age: 46 Year
  Sex: Female
  Weight: 70 kg

DRUGS (6)
  1. AVANDIA [Suspect]
     Dosage: 8MG PER DAY
     Route: 048
     Dates: start: 20030920, end: 20030930
  2. SULFAMETHOXAZOLE AND TRIMETHOPRIM [Suspect]
     Indication: URINARY TRACT INFECTION
     Dosage: 2UNIT PER DAY
     Route: 048
     Dates: start: 20030920, end: 20030929
  3. GLUCOPHAGE [Concomitant]
     Dosage: 1G THREE TIMES PER DAY
     Route: 048
     Dates: start: 20030920
  4. TAHOR [Concomitant]
     Dosage: 10MG PER DAY
     Route: 048
     Dates: start: 20030522
  5. TRIATEC [Concomitant]
     Indication: HYPERTENSION
     Dosage: 1.25MG PER DAY
     Route: 048
     Dates: start: 20030522
  6. LUTENYL [Concomitant]
     Indication: MENSTRUAL DISORDER
     Dosage: 5MG PER DAY
     Route: 048
     Dates: start: 19980101

REACTIONS (5)
  - ABDOMINAL PAIN LOWER [None]
  - HYPERGLYCAEMIA [None]
  - MALAISE [None]
  - NEURALGIA [None]
  - VISION BLURRED [None]
